FAERS Safety Report 8212505-6 (Version None)
Quarter: 2012Q1

REPORT INFORMATION
  Report Type: 
  Country: None (occurrence: None)
  Receive Date: 20120315
  Receipt Date: 20120307
  Transmission Date: 20120608
  Serious: Yes (Death)
  Sender: FDA-Public Use
  Company Number: JP-GLAXOSMITHKLINE-B0770976A

PATIENT
  Sex: Male
  Weight: 43 kg

DRUGS (35)
  1. VINCRISTINE SULFATE [Suspect]
     Indication: NEOPLASM MALIGNANT
     Dosage: 2MG PER DAY
     Route: 042
     Dates: start: 20110201, end: 20110207
  2. ELSPAR [Concomitant]
     Dosage: 8800IUAX PER DAY
     Route: 042
     Dates: start: 20110415, end: 20110506
  3. BORTEZOMIB [Concomitant]
     Indication: NEOPLASM MALIGNANT
     Dosage: 1.9MG PER DAY
     Route: 042
     Dates: start: 20110414, end: 20110424
  4. DEXAMETHASONE [Concomitant]
     Indication: NEOPLASM MALIGNANT
     Route: 048
     Dates: start: 20110201, end: 20110207
  5. MERCAPTOPURINE [Concomitant]
     Indication: NEOPLASM MALIGNANT
     Route: 048
     Dates: start: 20110201, end: 20110205
  6. CYTARABINE [Concomitant]
     Indication: NEOPLASM MALIGNANT
     Dosage: 3G PER DAY
     Route: 042
     Dates: start: 20110613, end: 20110616
  7. CYTARABINE [Suspect]
     Indication: CORD BLOOD TRANSPLANT THERAPY
     Dates: start: 20110205, end: 20110205
  8. MELPHALAN HYDROCHLORIDE [Concomitant]
     Indication: NEOPLASM MALIGNANT
     Dosage: 106MG PER DAY
     Route: 042
     Dates: start: 20110617, end: 20110618
  9. FUNGUARD [Concomitant]
     Indication: FUNGAL INFECTION
     Route: 042
     Dates: start: 20110305, end: 20110806
  10. VFEND [Concomitant]
     Indication: FUNGAL INFECTION
     Route: 048
     Dates: start: 20110318, end: 20110407
  11. CYTARABINE [Suspect]
     Indication: NEOPLASM MALIGNANT
     Dates: start: 20110201, end: 20110201
  12. VINCRISTINE SULFATE [Suspect]
     Dosage: 2MG PER DAY
     Route: 042
     Dates: start: 20110414, end: 20110421
  13. ETOPOSIDE [Concomitant]
     Dosage: 140MG PER DAY
     Dates: start: 20110322, end: 20110326
  14. ZOVIRAX [Concomitant]
     Indication: PROPHYLAXIS
     Route: 048
     Dates: start: 20110228, end: 20110620
  15. COTRIM [Concomitant]
     Indication: PROPHYLAXIS
     Route: 048
     Dates: start: 20110228, end: 20110612
  16. AZACTAM [Concomitant]
     Indication: FEBRILE NEUTROPENIA
     Dates: start: 20110520, end: 20110529
  17. VICCLOX [Concomitant]
     Indication: PROPHYLAXIS
     Route: 042
     Dates: start: 20110621, end: 20110807
  18. ARRANON [Suspect]
     Indication: PRECURSOR T-LYMPHOBLASTIC LYMPHOMA/LEUKAEMIA
     Dosage: 650MGM2 PER DAY
     Route: 042
     Dates: start: 20110228, end: 20110304
  19. FLUDARABINE PHOSPHATE [Concomitant]
     Dosage: 43MG PER DAY
     Dates: start: 20110322, end: 20110326
  20. METHOTREXATE [Suspect]
     Route: 042
     Dates: start: 20110201, end: 20110202
  21. FLUDARABINE PHOSPHATE [Concomitant]
     Dosage: 38MG PER DAY
     Dates: start: 20110613, end: 20110616
  22. ELSPAR [Concomitant]
     Indication: NEOPLASM MALIGNANT
     Route: 042
     Dates: start: 20110207, end: 20110207
  23. METHOTREXATE [Suspect]
     Indication: NEOPLASM MALIGNANT
     Dates: start: 20110201, end: 20110201
  24. FLUDARABINE PHOSPHATE [Concomitant]
     Indication: NEOPLASM MALIGNANT
     Dosage: 43MG PER DAY
     Dates: start: 20110228, end: 20110304
  25. AMBISOME [Concomitant]
     Indication: FUNGAL INFECTION
     Route: 042
     Dates: start: 20110518, end: 20110806
  26. ZOSYN [Concomitant]
     Indication: FEBRILE NEUTROPENIA
     Route: 042
     Dates: start: 20110328, end: 20110406
  27. CARBENIN [Concomitant]
     Indication: FEBRILE NEUTROPENIA
     Route: 042
     Dates: start: 20110428, end: 20110520
  28. FRAGMIN [Concomitant]
     Indication: PROPHYLAXIS
     Route: 042
     Dates: start: 20110612, end: 20110722
  29. ARRANON [Suspect]
     Dosage: 650MGM2 PER DAY
     Route: 042
     Dates: start: 20110322, end: 20110326
  30. ETOPOSIDE [Concomitant]
     Indication: NEOPLASM MALIGNANT
     Dosage: 140MG PER DAY
     Dates: start: 20110228, end: 20110304
  31. DOXORUBICIN HCL [Concomitant]
     Indication: NEOPLASM MALIGNANT
     Dosage: 88MG PER DAY
     Route: 042
     Dates: start: 20110414, end: 20110414
  32. PREDNISOLONE [Concomitant]
     Indication: NEOPLASM MALIGNANT
     Dates: start: 20110201, end: 20110201
  33. MAXIPIME [Concomitant]
     Indication: FEBRILE NEUTROPENIA
     Route: 042
     Dates: start: 20110520, end: 20110529
  34. TACROLIMUS [Concomitant]
     Indication: GRAFT VERSUS HOST DISEASE
     Route: 048
     Dates: start: 20110620, end: 20110807
  35. TARGOCID [Concomitant]
     Indication: FEBRILE NEUTROPENIA
     Route: 042
     Dates: start: 20110721, end: 20110807

REACTIONS (1)
  - NERVOUS SYSTEM DISORDER [None]
